FAERS Safety Report 16142438 (Version 1)
Quarter: 2019Q2

REPORT INFORMATION
  Report Type: Spontaneous
  Country: DK (occurrence: DK)
  Receive Date: 20190401
  Receipt Date: 20190401
  Transmission Date: 20190711
  Serious: Yes (Hospitalization)
  Sender: FDA-Public Use
  Company Number: DK-TEVA-2019-DK-1031286

PATIENT
  Age: 63 Year
  Sex: Female

DRUGS (4)
  1. ALENDRONIC ACID [Suspect]
     Active Substance: ALENDRONIC ACID
     Indication: OSTEOPOROSIS
     Dosage: STRENGTH: 70 MG.
     Route: 048
     Dates: start: 201405, end: 20180604
  2. FOLINIC ACID [Concomitant]
     Active Substance: LEUCOVORIN
     Indication: VITAMIN SUPPLEMENTATION
     Dosage: STRENGTH: 5 MG.?DOSE: 5 MG THURSDAY AND 5 MG SATURDAY.
     Route: 048
     Dates: start: 20130715, end: 20181022
  3. UNIKALK MED D-VITAMIN [Concomitant]
     Indication: VITAMIN SUPPLEMENTATION
     Dosage: 2 DOSAGE FORMS DAILY; STRENGTH: UNKNOWN
     Route: 048
     Dates: start: 20130715
  4. METHOTREXATE. [Suspect]
     Active Substance: METHOTREXATE
     Indication: RHEUMATOID ARTHRITIS
     Dosage: DOSE: UNKNOWN, STRENGTH: UNKNOWN.
     Route: 058
     Dates: start: 20130715

REACTIONS (4)
  - Wheelchair user [Unknown]
  - Pain [Unknown]
  - Stress fracture [Unknown]
  - Impaired healing [Unknown]

NARRATIVE: CASE EVENT DATE: 201510
